FAERS Safety Report 13302934 (Version 1)
Quarter: 2017Q1

REPORT INFORMATION
  Report Type: Spontaneous
  Country: RU (occurrence: RU)
  Receive Date: 20170307
  Receipt Date: 20170307
  Transmission Date: 20170428
  Serious: Yes (Other)
  Sender: FDA-Public Use
  Company Number: RU-ELI_LILLY_AND_COMPANY-RU201703001841

PATIENT
  Sex: Male

DRUGS (6)
  1. CISPLATIN. [Concomitant]
     Active Substance: CISPLATIN
     Indication: TONGUE CARCINOMA STAGE I
     Dosage: UNK UNK, UNKNOWN
     Route: 065
     Dates: start: 20160216
  2. CISPLATIN. [Concomitant]
     Active Substance: CISPLATIN
     Dosage: UNK UNK, UNKNOWN
     Route: 065
     Dates: start: 20160419
  3. ERBITUX [Suspect]
     Active Substance: CETUXIMAB
     Indication: TONGUE CARCINOMA STAGE I
     Route: 065
     Dates: start: 20160216
  4. ERBITUX [Suspect]
     Active Substance: CETUXIMAB
     Route: 065
     Dates: start: 20160419
  5. 5-FLUOROURACIL                     /00098801/ [Concomitant]
     Active Substance: FLUOROURACIL
     Dosage: UNK UNK, UNKNOWN
     Route: 065
     Dates: start: 20160419
  6. 5-FLUOROURACIL                     /00098801/ [Concomitant]
     Active Substance: FLUOROURACIL
     Indication: TONGUE CARCINOMA STAGE I
     Dosage: UNK UNK, UNKNOWN
     Route: 065
     Dates: start: 20160216

REACTIONS (6)
  - Oral discomfort [Unknown]
  - Device dislocation [Unknown]
  - Asthenia [Unknown]
  - Gastrostomy [Unknown]
  - Tracheostomy [Unknown]
  - Malignant neoplasm progression [Unknown]

NARRATIVE: CASE EVENT DATE: 20160714
